FAERS Safety Report 10433737 (Version 1)
Quarter: 2014Q3

REPORT INFORMATION
  Report Type: Spontaneous
  Country: US (occurrence: None)
  Receive Date: 20140904
  Receipt Date: 20140904
  Transmission Date: 20150326
  Serious: Yes (Hospitalization)
  Sender: FDA-Public Use
  Company Number: None

PATIENT
  Age: 55 Year
  Sex: Male
  Weight: 180 kg

DRUGS (1)
  1. BEVACIZUMAB [Suspect]
     Active Substance: BEVACIZUMAB
     Dates: end: 20140805

REACTIONS (5)
  - Chest discomfort [None]
  - Blood pressure increased [None]
  - Cardiac failure congestive [None]
  - Dyspnoea exertional [None]
  - Cardiac hypertrophy [None]

NARRATIVE: CASE EVENT DATE: 20140821
